FAERS Safety Report 13508541 (Version 1)
Quarter: 2017Q2

REPORT INFORMATION
  Report Type: Spontaneous
  Country: US (occurrence: US)
  Receive Date: 20170503
  Receipt Date: 20170503
  Transmission Date: 20170830
  Serious: No
  Sender: FDA-Public Use
  Company Number: US-PFIZER INC-2017190685

PATIENT
  Age: 12 Year
  Sex: Female
  Weight: 58 kg

DRUGS (3)
  1. CONSTULOSE [Concomitant]
     Active Substance: LACTULOSE
     Dosage: UNK
     Route: 048
     Dates: start: 20160809
  2. GENOTROPIN [Suspect]
     Active Substance: SOMATROPIN
     Indication: GROWTH HORMONE DEFICIENCY
     Dosage: 2.8 MG, DAILY
     Route: 058
     Dates: start: 2010
  3. GENOTROPIN [Suspect]
     Active Substance: SOMATROPIN
     Dosage: 2.8 MG, DAILY
     Route: 058
     Dates: start: 20140901

REACTIONS (3)
  - Headache [Unknown]
  - Intentional product misuse [Unknown]
  - Injection site pain [Unknown]
